FAERS Safety Report 13961723 (Version 2)
Quarter: 2017Q3

REPORT INFORMATION
  Report Type: Report from Study
  Country: US (occurrence: US)
  Receive Date: 20170912
  Receipt Date: 20170920
  Transmission Date: 20171128
  Serious: Yes (Hospitalization)
  Sender: FDA-Public Use
  Company Number: US-EISAI MEDICAL RESEARCH-EC-2017-030690

PATIENT
  Age: 85 Year
  Sex: Male
  Weight: 79 kg

DRUGS (10)
  1. LENVIMA [Suspect]
     Active Substance: LENVATINIB
     Indication: THYROID CANCER METASTATIC
     Route: 048
     Dates: start: 20170812, end: 201708
  2. IPRATROPIUM [Concomitant]
     Active Substance: IPRATROPIUM
  3. COUMADIN [Concomitant]
     Active Substance: WARFARIN SODIUM
  4. SYNTHROID [Concomitant]
     Active Substance: LEVOTHYROXINE SODIUM
  5. TOPROL XL [Concomitant]
     Active Substance: METOPROLOL SUCCINATE
  6. LENVIMA [Suspect]
     Active Substance: LENVATINIB
     Route: 048
     Dates: start: 20170903, end: 20170907
  7. ELIQUIS [Concomitant]
     Active Substance: APIXABAN
  8. COMPAZINE [Concomitant]
     Active Substance: PROCHLORPERAZINE MALEATE
  9. SINGULAIR [Concomitant]
     Active Substance: MONTELUKAST SODIUM
  10. MUCINEX [Concomitant]
     Active Substance: GUAIFENESIN

REACTIONS (11)
  - Insomnia [Not Recovered/Not Resolved]
  - Vision blurred [Unknown]
  - Nervousness [Unknown]
  - Feeling abnormal [Not Recovered/Not Resolved]
  - Diarrhoea [Unknown]
  - Dyspnoea [Not Recovered/Not Resolved]
  - Thyroid function test abnormal [Not Recovered/Not Resolved]
  - Pleural effusion [Unknown]
  - Malaise [Not Recovered/Not Resolved]
  - Hepatic enzyme increased [Unknown]
  - Blood pressure increased [Unknown]

NARRATIVE: CASE EVENT DATE: 2017
